FAERS Safety Report 13777041 (Version 1)
Quarter: 2017Q3

REPORT INFORMATION
  Report Type: Spontaneous
  Country: US (occurrence: US)
  Receive Date: 20170721
  Receipt Date: 20170721
  Transmission Date: 20171127
  Serious: Yes (Other)
  Sender: FDA-Public Use
  Company Number: None

PATIENT
  Age: 54 Year
  Sex: Male
  Weight: 90 kg

DRUGS (19)
  1. ENTRESTO [Suspect]
     Active Substance: SACUBITRIL\VALSARTAN
     Indication: CARDIAC FAILURE
     Route: 048
     Dates: start: 20170201, end: 20170206
  2. MEXILETINE [Concomitant]
     Active Substance: MEXILETINE
  3. ALPRAZOLAM. [Concomitant]
     Active Substance: ALPRAZOLAM
  4. BETA CAROTENE [Concomitant]
  5. ASPIRIN. [Concomitant]
     Active Substance: ASPIRIN
  6. VIAGRA [Concomitant]
     Active Substance: SILDENAFIL CITRATE
  7. COQ10 [Concomitant]
     Active Substance: UBIDECARENONE
  8. FUROSEMIDE. [Concomitant]
     Active Substance: FUROSEMIDE
  9. METFORMIN [Concomitant]
     Active Substance: METFORMIN HYDROCHLORIDE
  10. AMIODORONE [Concomitant]
     Active Substance: AMIODARONE
  11. COUMADIN [Concomitant]
     Active Substance: WARFARIN SODIUM
  12. VITAMIN C [Concomitant]
     Active Substance: ASCORBIC ACID
  13. LIPITOR [Concomitant]
     Active Substance: ATORVASTATIN CALCIUM
  14. NIACIN. [Concomitant]
     Active Substance: NIACIN
  15. MELATONIN [Concomitant]
     Active Substance: MELATONIN
  16. COREG [Concomitant]
     Active Substance: CARVEDILOL
  17. LISINIPRIL [Concomitant]
     Active Substance: LISINOPRIL
  18. FISH OIL [Concomitant]
     Active Substance: FISH OIL
  19. VITAMIN B COMPLEX [Concomitant]
     Active Substance: CYANOCOBALAMIN\DEXPANTHENOL\NIACINAMIDE\PYRIDOXINE HYDROCHLORIDE\RIBOFLAVIN 5^-PHOSPHATE SODIUM\THIAMINE HYDROCHLORIDE\VITAMIN B COMPLEX

REACTIONS (1)
  - Dyspnoea [None]

NARRATIVE: CASE EVENT DATE: 20170605
